FAERS Safety Report 23718709 (Version 1)
Quarter: 2024Q2

REPORT INFORMATION
  Report Type: Spontaneous
  Country: BR (occurrence: BR)
  Receive Date: 20240408
  Receipt Date: 20240408
  Transmission Date: 20240715
  Serious: Yes (Death, Other)
  Sender: FDA-Public Use
  Company Number: BR-JAZZ PHARMACEUTICALS-2024-BR-005556

PATIENT
  Age: 20 Year

DRUGS (1)
  1. DEFITELIO [Suspect]
     Active Substance: DEFIBROTIDE SODIUM
     Indication: Venoocclusive disease
     Dosage: 25 MILLIGRAM/KILOGRAM, QD
     Dates: start: 20240321, end: 20240325

REACTIONS (2)
  - Haemorrhage [Fatal]
  - Intestinal ischaemia [Fatal]

NARRATIVE: CASE EVENT DATE: 20240325
